FAERS Safety Report 17049802 (Version 2)
Quarter: 2019Q4

REPORT INFORMATION
  Report Type: Spontaneous
  Country: JP (occurrence: JP)
  Receive Date: 20191119
  Receipt Date: 20191218
  Transmission Date: 20200122
  Serious: Yes (Hospitalization, Other)
  Sender: FDA-Public Use
  Company Number: JP-BRISTOL-MYERS SQUIBB COMPANY-BMS-2019-110461

PATIENT
  Age: 42 Year
  Sex: Male
  Weight: 80.7 kg

DRUGS (8)
  1. FUROSEMIDE. [Concomitant]
     Active Substance: FUROSEMIDE
     Indication: METASTATIC RENAL CELL CARCINOMA
     Dosage: 40 MILLIGRAM, QD
     Route: 048
     Dates: start: 20180920
  2. AXITINIB [Concomitant]
     Active Substance: AXITINIB
     Indication: METASTATIC RENAL CELL CARCINOMA
     Dosage: 10 MILLIGRAM
     Route: 065
     Dates: start: 20181226
  3. AXITINIB [Concomitant]
     Active Substance: AXITINIB
     Indication: PRODUCT USED FOR UNKNOWN INDICATION
     Dosage: 14 MILLIGRAM
     Route: 065
  4. AXITINIB [Concomitant]
     Active Substance: AXITINIB
     Indication: PRODUCT USED FOR UNKNOWN INDICATION
     Dosage: 10 MILLIGRAM
     Route: 065
  5. YERVOY [Suspect]
     Active Substance: IPILIMUMAB
     Indication: METASTATIC RENAL CELL CARCINOMA
     Dosage: 100 MILLIGRAM
     Route: 041
     Dates: start: 20180914
  6. OPDIVO [Suspect]
     Active Substance: NIVOLUMAB
     Indication: METASTATIC RENAL CELL CARCINOMA
     Dosage: 240 MILLIGRAM (4 COURSES)
     Route: 041
     Dates: start: 20180914, end: 20181116
  7. SPIRONOLACTONE. [Concomitant]
     Active Substance: SPIRONOLACTONE
     Indication: METASTATIC RENAL CELL CARCINOMA
     Dosage: 25 MILLIGRAM, QD
     Route: 048
     Dates: start: 20180920
  8. CALONAL [Concomitant]
     Active Substance: ACETAMINOPHEN
     Indication: METASTATIC RENAL CELL CARCINOMA
     Dosage: 500 MILLIGRAM, Q6H
     Route: 048
     Dates: start: 20180920

REACTIONS (9)
  - Malaise [Recovering/Resolving]
  - Altered state of consciousness [Unknown]
  - Hyperthyroidism [Not Recovered/Not Resolved]
  - Blood bilirubin increased [Unknown]
  - Asterixis [Unknown]
  - Ammonia increased [Unknown]
  - Pyrexia [Recovered/Resolved]
  - Hypothyroidism [Unknown]
  - Jaundice [Unknown]

NARRATIVE: CASE EVENT DATE: 20180920
